FAERS Safety Report 21615490 (Version 2)
Quarter: 2023Q1

REPORT INFORMATION
  Report Type: Spontaneous
  Country: US (occurrence: US)
  Receive Date: 20221118
  Receipt Date: 20230103
  Transmission Date: 20230418
  Serious: No
  Sender: FDA-Public Use
  Company Number: US-PFIZER INC-202201300253

PATIENT
  Age: 83 Year
  Sex: Female
  Weight: 72.57 kg

DRUGS (4)
  1. HYDROCORTISONE [Suspect]
     Active Substance: HYDROCORTISONE
     Indication: Addison^s disease
     Dosage: 25 MG, DAILY, 2 TABLETS AFTER BREAKFAST, 2 TABLETS AFTER LUNCH, 1 TABLET AFTER DINNER.
     Route: 048
  2. LANTUS [Concomitant]
     Active Substance: INSULIN GLARGINE
     Dosage: SHOT, 20 UNITS BEFORE BEDTIME
  3. METFORMIN [Concomitant]
     Active Substance: METFORMIN HYDROCHLORIDE
     Indication: Diabetes mellitus
     Dosage: HALF TABLET IN THE AFTERNOON AND A WHOLE TABLET AT NIGHT, TAKING FOR YEARS
     Route: 048
  4. HUMALOG [Concomitant]
     Active Substance: INSULIN LISPRO
     Indication: Diabetes mellitus
     Dosage: ONE SHOT BEFORE EACH MEAL, THINKS THE DOSE IS 10 UNITS. TAKING FOR YEARS

REACTIONS (2)
  - Emotional disorder [Unknown]
  - Feeling abnormal [Unknown]
